FAERS Safety Report 10355581 (Version 1)
Quarter: 2014Q3

REPORT INFORMATION
  Report Type: Spontaneous
  Country: US (occurrence: None)
  Receive Date: 20140728
  Receipt Date: 20140728
  Transmission Date: 20150326
  Serious: Yes (Hospitalization)
  Sender: FDA-Public Use
  Company Number: UNT-2014-004098

PATIENT
  Age: 90 Year
  Sex: Male

DRUGS (2)
  1. COUMADIN /00014802/ (WARFARIN SODIUM) [Concomitant]
  2. TYVASO [Suspect]
     Active Substance: TREPROSTINIL
     Indication: COR PULMONALE CHRONIC
     Route: 055
     Dates: start: 20120703

REACTIONS (5)
  - Urinary tract infection [None]
  - Pneumonia [None]
  - Insomnia [None]
  - Dyspnoea [None]
  - Fatigue [None]

NARRATIVE: CASE EVENT DATE: 20140712
